FAERS Safety Report 10312885 (Version 3)
Quarter: 2014Q3

REPORT INFORMATION
  Report Type: Spontaneous
  Country: US (occurrence: US)
  Receive Date: 20140718
  Receipt Date: 20140731
  Transmission Date: 20150326
  Serious: No
  Sender: FDA-Public Use
  Company Number: US-PFIZER INC-2014196222

PATIENT
  Age: 15 Year
  Sex: Male
  Weight: 47.2 kg

DRUGS (1)
  1. GENOTROPIN [Suspect]
     Active Substance: SOMATROPIN
     Indication: DWARFISM
     Dosage: 2 MG, DAILY [7 DAYS PER WEEK]
     Route: 058
     Dates: start: 20140702

REACTIONS (4)
  - Viral infection [Unknown]
  - Urticaria [Recovering/Resolving]
  - Injection site bruising [Recovered/Resolved]
  - Rash [Recovering/Resolving]

NARRATIVE: CASE EVENT DATE: 20140709
